FAERS Safety Report 15562275 (Version 2)
Quarter: 2018Q4

REPORT INFORMATION
  Report Type: Spontaneous
  Country: CH (occurrence: CH)
  Receive Date: 20181029
  Receipt Date: 20181123
  Transmission Date: 20190205
  Serious: Yes (Hospitalization, Other)
  Sender: FDA-Public Use
  Company Number: CH-PFIZER INC-2018435083

PATIENT
  Age: 73 Year
  Sex: Male
  Weight: 114 kg

DRUGS (13)
  1. ATACAND [Concomitant]
     Active Substance: CANDESARTAN CILEXETIL
     Dosage: 16 MG, DAILY
  2. TOVIAZ [Concomitant]
     Active Substance: FESOTERODINE FUMARATE
     Dosage: 4 MG, DAILY
  3. TRAJENTA [Concomitant]
     Active Substance: LINAGLIPTIN
     Dosage: 5 MG, DAILY
  4. PRADIF T [Concomitant]
     Active Substance: TAMSULOSIN HYDROCHLORIDE
     Dosage: 0.4 MG, DAILY
  5. ASPIRIN CARDIO [Interacting]
     Active Substance: ASPIRIN
     Indication: ARTERIOSCLEROSIS CORONARY ARTERY
     Dosage: 100 MG, DAILY
     Route: 048
     Dates: end: 20180803
  6. PANTOZOL [Concomitant]
     Active Substance: PANTOPRAZOLE SODIUM
     Dosage: 40 MG, DAILY
  7. SILDENAFIL PFIZER [Concomitant]
     Active Substance: SILDENAFIL
     Dosage: 25 MG, DAILY
  8. DILZEM RETARD [Suspect]
     Active Substance: DILTIAZEM
     Dosage: 120 MG, 2X/DAY
  9. XARELTO [Interacting]
     Active Substance: RIVAROXABAN
     Indication: EVIDENCE BASED TREATMENT
     Dosage: 20 MG/D
     Route: 048
     Dates: start: 20180705, end: 20180803
  10. OPSUMIT [Concomitant]
     Active Substance: MACITENTAN
     Dosage: 10 MG, DAILY
  11. XARELTO [Interacting]
     Active Substance: RIVAROXABAN
     Indication: EVIDENCE BASED TREATMENT
  12. SPIRICORT [Interacting]
     Active Substance: PREDNISOLONE
     Dosage: 15 MG, DAILY
     Dates: end: 20180802
  13. ATORVASTATIN PFIZER [Concomitant]
     Active Substance: ATORVASTATIN
     Dosage: 10 MG, DAILY

REACTIONS (4)
  - Gastrointestinal haemorrhage [Recovered/Resolved]
  - Haemorrhagic anaemia [Recovering/Resolving]
  - Product prescribing error [Recovered/Resolved]
  - Potentiating drug interaction [Recovered/Resolved]

NARRATIVE: CASE EVENT DATE: 201807
